FAERS Safety Report 26187871 (Version 1)
Quarter: 2025Q4

REPORT INFORMATION
  Report Type: Spontaneous
  Country: US (occurrence: US)
  Receive Date: 20251222
  Receipt Date: 20251222
  Transmission Date: 20260118
  Serious: Yes (Other)
  Sender: INCYTE
  Company Number: US-EVENT-005304

PATIENT

DRUGS (2)
  1. NIKTIMVO [Suspect]
     Active Substance: AXATILIMAB-CSFR
     Indication: Chronic graft versus host disease
     Dosage: UNK
     Route: 065
  2. NIKTIMVO [Suspect]
     Active Substance: AXATILIMAB-CSFR
     Dosage: DOSES 18-20 (AROUND CYCLE 11)
     Route: 065

REACTIONS (1)
  - Anaphylactic reaction [Unknown]
